FAERS Safety Report 5946602-2 (Version None)
Quarter: 2008Q4

REPORT INFORMATION
  Report Type: 
  Country: None (occurrence: None)
  Receive Date: 20081110
  Receipt Date: 20081028
  Transmission Date: 20090506
  Serious: Yes (Hospitalization)
  Sender: FDA-Public Use
  Company Number: US-ROCHE-593627

PATIENT
  Sex: Female
  Weight: 82 kg

DRUGS (8)
  1. METHOXY POLYETHYLENE GLYCOL-EPOETIN BETA [Suspect]
     Route: 042
     Dates: start: 20050805, end: 20061218
  2. METHOXY POLYETHYLENE GLYCOL-EPOETIN BETA [Suspect]
     Route: 042
  3. AMBIEN [Concomitant]
  4. LANTUS [Concomitant]
  5. LYRICA [Concomitant]
  6. OXYCONTIN [Concomitant]
  7. PRILOSEC [Concomitant]
  8. PROCAL [Concomitant]
     Dosage: REPORTED AS PROZAL.

REACTIONS (2)
  - ENDOCARDITIS STAPHYLOCOCCAL [None]
  - PYREXIA [None]
